FAERS Safety Report 5709136-6 (Version None)
Quarter: 2008Q2

REPORT INFORMATION
  Report Type: 
  Country: None (occurrence: None)
  Receive Date: 20080416
  Receipt Date: 20080416
  Transmission Date: 20081010
  Serious: No
  Sender: FDA-Public Use
  Company Number: None

PATIENT
  Age: 38 Year
  Sex: Male
  Weight: 93.39 kg

DRUGS (1)
  1. TOPIRAMATE [Suspect]
     Dosage: 25MG BID PO
     Route: 048
     Dates: start: 20080402, end: 20080412

REACTIONS (1)
  - MYOPIA [None]
